FAERS Safety Report 6538999-X (Version None)
Quarter: 2010Q1

REPORT INFORMATION
  Report Type: 
  Country: None (occurrence: None)
  Receive Date: 20100115
  Receipt Date: 20100111
  Transmission Date: 20100710
  Serious: Yes (Life-Threatening, Hospitalization, Disabling, Congenital Anomaly, Other)
  Sender: FDA-Public Use
  Company Number: GB-B.I. PHARMACEUTICALS,INC./RIDGEFIELD-2009-UK-00635UK

PATIENT
  Sex: Female
  Weight: 2.2 kg

DRUGS (12)
  1. APTIVUS [Suspect]
     Indication: DRUG EXPOSURE DURING PREGNANCY
     Dosage: 1000 MG
     Route: 064
     Dates: start: 20060905, end: 20081023
  2. APTIVUS [Suspect]
     Route: 064
     Dates: start: 20070605, end: 20081023
  3. TRUVADA [Suspect]
     Indication: DRUG EXPOSURE DURING PREGNANCY
     Route: 064
     Dates: start: 20060905, end: 20081023
  4. TRUVADA [Suspect]
     Route: 064
     Dates: start: 20070605, end: 20081023
  5. RITONAVIR [Suspect]
     Indication: DRUG EXPOSURE DURING PREGNANCY
     Dosage: 400 MG
     Route: 064
     Dates: start: 20060905, end: 20081023
  6. RITONAVIR [Suspect]
     Dosage: 200 MG
     Route: 064
     Dates: start: 20081023
  7. ETRAVIRINE [Suspect]
     Indication: DRUG EXPOSURE DURING PREGNANCY
     Dosage: 1000 MG
     Route: 064
     Dates: start: 20081023
  8. RALTEGRAVIR [Suspect]
     Indication: DRUG EXPOSURE DURING PREGNANCY
     Dosage: 800 MG
     Route: 064
     Dates: start: 20081023, end: 20090221
  9. PREZISTA [Suspect]
     Indication: DRUG EXPOSURE DURING PREGNANCY
     Dosage: 1200 MG
     Route: 064
     Dates: start: 20081023
  10. PREDNISOLONE [Concomitant]
  11. NOVORAPID [Concomitant]
     Indication: GESTATIONAL DIABETES
     Route: 064
  12. ZIDOVUDINE [Concomitant]

REACTIONS (15)
  - BLADDER AGENESIS [None]
  - BLOOD IRON DECREASED [None]
  - CAUDAL REGRESSION SYNDROME [None]
  - CLOACAL EXSTROPHY [None]
  - CONGENITAL MUSCULOSKELETAL ANOMALY [None]
  - ERYTHEMA [None]
  - EXOMPHALOS [None]
  - GASTROINTESTINAL DISORDER CONGENITAL [None]
  - GENITALIA EXTERNAL AMBIGUOUS [None]
  - LIPODYSTROPHY ACQUIRED [None]
  - MECONIUM STAIN [None]
  - MENINGOMYELOCELE [None]
  - PAIN IN EXTREMITY [None]
  - SEPSIS [None]
  - UMBILICAL CORD ABNORMALITY [None]
